FAERS Safety Report 8319803-6 (Version None)
Quarter: 2012Q2

REPORT INFORMATION
  Report Type: 
  Country: None (occurrence: None)
  Receive Date: 20120427
  Receipt Date: 20120425
  Transmission Date: 20120825
  Serious: Yes (Hospitalization, Disabling)
  Sender: FDA-Public Use
  Company Number: JP-AMGEN-JPNCT2012019623

PATIENT
  Age: 63 Year
  Sex: Male
  Weight: 66 kg

DRUGS (8)
  1. BLINDED DENOSUMAB [Suspect]
     Indication: RHEUMATOID ARTHRITIS
     Route: 058
     Dates: start: 20110704, end: 20120305
  2. URALYT [Concomitant]
     Indication: GOUT
     Dosage: UNKNOWN
     Route: 048
  3. CALCICHEW D3 [Concomitant]
     Indication: PRODUCT USED FOR UNKNOWN INDICATION
     Route: 048
     Dates: start: 20110613, end: 20120317
  4. PLACEBO [Suspect]
     Indication: RHEUMATOID ARTHRITIS
     Route: 058
     Dates: start: 20110704, end: 20120305
  5. FOLIAMIN [Concomitant]
     Indication: PROPHYLAXIS
     Dosage: 5 MG, QWK
     Route: 048
  6. METHOTREXATE [Concomitant]
     Indication: RHEUMATOID ARTHRITIS
     Dosage: 8 MG, QWK
     Route: 048
  7. PROTECADIN [Concomitant]
     Indication: DUODENAL ULCER
     Dosage: UNKNOWN
     Route: 048
  8. KETOPROFEN [Concomitant]
     Dosage: ARBITRARILY ADEQUATE DOSE
     Route: 062

REACTIONS (1)
  - CEREBRAL HAEMORRHAGE [None]
